APPROVED DRUG PRODUCT: ORPHENGESIC
Active Ingredient: ASPIRIN; CAFFEINE; ORPHENADRINE CITRATE
Strength: 385MG;30MG;25MG
Dosage Form/Route: TABLET;ORAL
Application: A075141 | Product #001
Applicant: GALT PHARMACEUTICALS LLC
Approved: May 29, 1998 | RLD: No | RS: No | Type: RX